FAERS Safety Report 11317323 (Version 1)
Quarter: 2015Q3

REPORT INFORMATION
  Report Type: Spontaneous
  Country: ES (occurrence: ES)
  Receive Date: 20150728
  Receipt Date: 20150728
  Transmission Date: 20151125
  Serious: Yes (Death, Other)
  Sender: FDA-Public Use
  Company Number: PHHY2015ES086640

PATIENT

DRUGS (4)
  1. DIGOXIN. [Concomitant]
     Active Substance: DIGOXIN
     Indication: HYDROPS FOETALIS
     Route: 015
  2. SOTALOL. [Suspect]
     Active Substance: SOTALOL
     Indication: TACHYCARDIA FOETAL
  3. SOTALOL. [Suspect]
     Active Substance: SOTALOL
     Indication: HYDROPS FOETALIS
     Route: 015
  4. DIGOXIN. [Concomitant]
     Active Substance: DIGOXIN
     Indication: TACHYCARDIA FOETAL

REACTIONS (2)
  - Foetal exposure during pregnancy [Unknown]
  - Death [Fatal]
